FAERS Safety Report 4677353-2 (Version None)
Quarter: 2005Q2

REPORT INFORMATION
  Report Type: 
  Country: None (occurrence: None)
  Receive Date: 20050531
  Receipt Date: 20041207
  Transmission Date: 20051028
  Serious: Yes (Disabling)
  Sender: FDA-Public Use
  Company Number: PHBS2004IT16640

PATIENT
  Age: 76 Year
  Sex: Male

DRUGS (3)
  1. ZOMETA [Suspect]
     Indication: MULTIPLE MYELOMA
     Dosage: 4 MG, QMO
     Route: 042
     Dates: start: 20020703, end: 20040513
  2. ALKERAN [Concomitant]
     Indication: MULTIPLE MYELOMA
     Route: 042
  3. DECADRON [Concomitant]
     Indication: MULTIPLE MYELOMA
     Route: 048

REACTIONS (2)
  - JAW DISORDER [None]
  - OSTEONECROSIS [None]
